FAERS Safety Report 21451683 (Version 2)
Quarter: 2022Q4

REPORT INFORMATION
  Report Type: Spontaneous
  Country: US (occurrence: US)
  Receive Date: 20221013
  Receipt Date: 20221018
  Transmission Date: 20230113
  Serious: No
  Sender: FDA-Public Use
  Company Number: US-BRISTOL-MYERS SQUIBB COMPANY-2022-119155

PATIENT
  Age: 73 Year
  Sex: Female
  Weight: 65 kg

DRUGS (1)
  1. REVLIMID [Suspect]
     Active Substance: LENALIDOMIDE
     Indication: Plasma cell myeloma
     Dosage: 2.5 MG, DAY 1-28 Q28 DAYS
     Route: 048
     Dates: start: 20191113

REACTIONS (1)
  - Treatment noncompliance [Unknown]

NARRATIVE: CASE EVENT DATE: 20221009
